FAERS Safety Report 5454597-3 (Version None)
Quarter: 2007Q3

REPORT INFORMATION
  Report Type: 
  Country: None (occurrence: None)
  Receive Date: 20070917
  Receipt Date: 20070903
  Transmission Date: 20080115
  Serious: Yes (Hospitalization)
  Sender: FDA-Public Use
  Company Number: GB-BRISTOL-MYERS SQUIBB COMPANY-13909148

PATIENT
  Age: 33 Year
  Sex: Female

DRUGS (4)
  1. IFOSFAMIDE [Suspect]
     Indication: EWING'S SARCOMA
     Dates: start: 20021201, end: 20021201
  2. VINCRISTINE [Suspect]
     Indication: EWING'S SARCOMA
     Dates: start: 20021201, end: 20030201
  3. DACTINOMYCIN [Suspect]
     Indication: EWING'S SARCOMA
     Dates: start: 20021201, end: 20030201
  4. CYCLOPHOSPHAMIDE [Concomitant]
     Dates: start: 20021201, end: 20030201

REACTIONS (4)
  - BLOOD CREATININE INCREASED [None]
  - FANCONI SYNDROME [None]
  - FEBRILE NEUTROPENIA [None]
  - OSTEOMALACIA [None]
